FAERS Safety Report 8971968 (Version 1)
Quarter: 2012Q4

REPORT INFORMATION
  Report Type: 
  Country: US (occurrence: US)
  Receive Date: 20121219
  Receipt Date: 20121219
  Transmission Date: 20130627
  Serious: No
  Sender: FDA-Public Use
  Company Number: US-BAYER-2012-132363

PATIENT
  Age: 44 Year
  Sex: Female

DRUGS (2)
  1. MIRENA [Suspect]
     Dosage: 20 ?g/d, CONT
     Route: 015
     Dates: start: 201205
  2. PREDNISONE [Concomitant]
     Indication: RASH
     Dosage: UNK

REACTIONS (5)
  - Hypomenorrhoea [None]
  - Breast tenderness [None]
  - Weight increased [None]
  - Abdominal distension [None]
  - Thinking abnormal [None]
